FAERS Safety Report 6467959-2 (Version None)
Quarter: 2009Q4

REPORT INFORMATION
  Report Type: 
  Country: None (occurrence: None)
  Receive Date: 20091202
  Receipt Date: 20081120
  Transmission Date: 20100525
  Serious: No
  Sender: FDA-Public Use
  Company Number: US-AMGEN-KDL319989

PATIENT
  Sex: Female
  Weight: 90.8 kg

DRUGS (4)
  1. ENBREL [Suspect]
     Indication: RHEUMATOID ARTHRITIS
     Dates: start: 20000621
  2. HYDROCHLOROTHIAZIDE [Concomitant]
  3. SYNTHROID [Concomitant]
  4. COZAAR [Concomitant]

REACTIONS (4)
  - INJECTION SITE ERYTHEMA [None]
  - INJECTION SITE HAEMATOMA [None]
  - INJECTION SITE INDURATION [None]
  - INJECTION SITE URTICARIA [None]
